FAERS Safety Report 6915088-3 (Version None)
Quarter: 2010Q3

REPORT INFORMATION
  Report Type: 
  Country: None (occurrence: None)
  Receive Date: 20100809
  Receipt Date: 20100730
  Transmission Date: 20110219
  Serious: Yes (Other)
  Sender: FDA-Public Use
  Company Number: BR-PFIZER INC-2010095869

PATIENT
  Age: 43 Year
  Sex: Male
  Weight: 90 kg

DRUGS (2)
  1. CELEBRA [Suspect]
     Indication: TENDONITIS
     Dosage: 200 MG, EVERY 12 HOURS
     Route: 048
     Dates: start: 20100701, end: 20100715
  2. TENORETIC 100 [Concomitant]
     Indication: HYPERTENSION
     Dosage: UNK
     Dates: start: 20020101

REACTIONS (1)
  - DERMATITIS BULLOUS [None]
